FAERS Safety Report 25452482 (Version 1)
Quarter: 2025Q2

REPORT INFORMATION
  Report Type: Report from Study
  Country: CA (occurrence: CA)
  Receive Date: 20250618
  Receipt Date: 20250618
  Transmission Date: 20250716
  Serious: Yes (Hospitalization, Other)
  Sender: ABBVIE
  Company Number: CA-ABBVIE-6323225

PATIENT
  Age: 38 Year
  Sex: Male

DRUGS (2)
  1. RINVOQ [Suspect]
     Active Substance: UPADACITINIB
     Indication: Crohn^s disease
     Route: 048
  2. RINVOQ [Suspect]
     Active Substance: UPADACITINIB
     Indication: Crohn^s disease
     Dosage: AT WEEK 6
     Route: 048
     Dates: start: 20250430

REACTIONS (13)
  - Rhabdomyolysis [Unknown]
  - Defaecation urgency [Not Recovered/Not Resolved]
  - Fistula [Not Recovered/Not Resolved]
  - Discomfort [Unknown]
  - Frequent bowel movements [Not Recovered/Not Resolved]
  - Rectal tenesmus [Unknown]
  - Enteritis [Unknown]
  - Colitis [Unknown]
  - Blood creatine phosphokinase abnormal [Unknown]
  - Ileocaecal resection [Unknown]
  - Abdominal pain [Unknown]
  - Wound dehiscence [Unknown]
  - Wound infection [Unknown]

NARRATIVE: CASE EVENT DATE: 20250101
